FAERS Safety Report 14813482 (Version 1)
Quarter: 2018Q2

REPORT INFORMATION
  Report Type: Spontaneous
  Country: US (occurrence: US)
  Receive Date: 20180426
  Receipt Date: 20180426
  Transmission Date: 20180711
  Serious: Yes (Other)
  Sender: FDA-Public Use
  Company Number: US-ALVOGEN-2018-ALVOGEN-095947

PATIENT
  Age: 62 Year
  Sex: Male

DRUGS (3)
  1. OXYCODONE [Suspect]
     Active Substance: OXYCODONE
     Indication: PRODUCT USED FOR UNKNOWN INDICATION
  2. WARFARIN [Interacting]
     Active Substance: WARFARIN
     Indication: PRODUCT USED FOR UNKNOWN INDICATION
  3. PHENYTOIN. [Interacting]
     Active Substance: PHENYTOIN
     Indication: SEIZURE

REACTIONS (3)
  - Bradycardia [Recovering/Resolving]
  - Abdominal pain upper [Recovered/Resolved]
  - Drug interaction [Recovered/Resolved]
